FAERS Safety Report 22642768 (Version 2)
Quarter: 2025Q2

REPORT INFORMATION
  Report Type: Spontaneous
  Country: IT (occurrence: IT)
  Receive Date: 20230627
  Receipt Date: 20250426
  Transmission Date: 20250717
  Serious: Yes (Other)
  Sender: AUROBINDO
  Company Number: IT-AUROBINDO-AUR-APL-2023-041342

PATIENT
  Age: 18 Year
  Sex: Male

DRUGS (7)
  1. LINEZOLID [Suspect]
     Active Substance: LINEZOLID
     Indication: Pathogen resistance
     Dosage: 600 MILLIGRAM, ONCE A DAY FOR A TOTAL OF 20 DAYS
     Route: 065
     Dates: start: 201807, end: 201808
  2. LINEZOLID [Suspect]
     Active Substance: LINEZOLID
     Route: 065
  3. MEROPENEM [Concomitant]
     Active Substance: MEROPENEM
     Indication: Bacterial infection
     Route: 065
     Dates: end: 201808
  4. COLISTIN [Concomitant]
     Active Substance: COLISTIN
     Indication: Bacterial infection
     Route: 065
     Dates: end: 201808
  5. AMIKACIN [Concomitant]
     Active Substance: AMIKACIN
     Indication: Bacterial infection
     Dosage: 1 GRAM, ONCE A DAY
     Route: 065
     Dates: end: 201808
  6. VANCOMYCIN [Concomitant]
     Active Substance: VANCOMYCIN
     Indication: Bacterial infection
     Route: 065
     Dates: end: 201808
  7. GENTAMICIN [Concomitant]
     Active Substance: GENTAMICIN
     Indication: Septic shock
     Route: 065

REACTIONS (2)
  - Bacteraemia [Unknown]
  - Drug resistance [Unknown]
